FAERS Safety Report 18944210 (Version 1)
Quarter: 2021Q1

REPORT INFORMATION
  Report Type: Other
  Country: FR (occurrence: FR)
  Receive Date: 20210226
  Receipt Date: 20210226
  Transmission Date: 20210420
  Serious: Yes (Other)
  Sender: FDA-Public Use
  Company Number: FR-APOTEX-2021AP004162

PATIENT
  Age: 49 Year
  Sex: Male

DRUGS (3)
  1. PAROXETINE. [Suspect]
     Active Substance: PAROXETINE
     Indication: MENTAL DISORDER
     Dosage: 10 MILLIGRAM, QD (10MG 1*/JR)
     Route: 048
     Dates: start: 20210107, end: 20210109
  2. MIRTAZAPINE. [Suspect]
     Active Substance: MIRTAZAPINE
     Indication: MENTAL DISORDER
     Dosage: 15 MILLIGRAM, QD (15MG1*/JR)
     Route: 048
     Dates: start: 20210107, end: 20210109
  3. OLANZAPINE. [Suspect]
     Active Substance: OLANZAPINE
     Indication: MENTAL DISORDER
     Dosage: 10 MILLIGRAM, QD (5MG 2*/JR)
     Route: 048
     Dates: start: 20210107, end: 20210109

REACTIONS (2)
  - Pyrexia [Recovered/Resolved]
  - Toxic skin eruption [Recovered/Resolved]

NARRATIVE: CASE EVENT DATE: 20210109
